FAERS Safety Report 8391979-4 (Version None)
Quarter: 2012Q2

REPORT INFORMATION
  Report Type: 
  Country: None (occurrence: None)
  Receive Date: 20120529
  Receipt Date: 20120524
  Transmission Date: 20120825
  Serious: Yes (Disabling, Other)
  Sender: FDA-Public Use
  Company Number: GB-ROCHE-1071851

PATIENT
  Age: 76 Year
  Sex: Female

DRUGS (3)
  1. PREDNISOLONE [Concomitant]
     Indication: WEGENER'S GRANULOMATOSIS
     Route: 048
     Dates: start: 20020101
  2. IBANDRONATE SODIUM [Suspect]
     Indication: OSTEOPOROSIS PROPHYLAXIS
     Dosage: IBANDRONATE SODIUM
     Dates: end: 20120301
  3. SEPTRA [Concomitant]
     Indication: WEGENER'S GRANULOMATOSIS
     Route: 048
     Dates: start: 20020101

REACTIONS (1)
  - FEMUR FRACTURE [None]
